FAERS Safety Report 25330320 (Version 1)
Quarter: 2025Q2

REPORT INFORMATION
  Report Type: Spontaneous
  Country: KR (occurrence: KR)
  Receive Date: 20250519
  Receipt Date: 20250519
  Transmission Date: 20250716
  Serious: Yes (Hospitalization)
  Sender: MYLAN
  Company Number: KR-MYLANLABS-2025M1041497

PATIENT
  Sex: Male

DRUGS (5)
  1. CELEBREX [Suspect]
     Active Substance: CELECOXIB
     Indication: Intervertebral disc disorder
     Dosage: 1 DOSAGE FORM, BID
     Dates: start: 20231027, end: 20231106
  2. PREGABALIN [Suspect]
     Active Substance: PREGABALIN
     Indication: Intervertebral disc disorder
     Dosage: 1 DOSAGE FORM, BID
     Dates: start: 20231027, end: 20231106
  3. ACETAMINOPHEN\TRAMADOL HYDROCHLORIDE [Suspect]
     Active Substance: ACETAMINOPHEN\TRAMADOL HYDROCHLORIDE
     Indication: Intervertebral disc disorder
     Dosage: 1 DOSAGE FORM, BID
     Dates: start: 20231027, end: 20231106
  4. LANSOPRAZOLE [Suspect]
     Active Substance: LANSOPRAZOLE
     Indication: Intervertebral disc disorder
     Dosage: 1 DOSAGE FORM, QD
     Dates: start: 20231027, end: 20231106
  5. AFLOQUALONE [Suspect]
     Active Substance: AFLOQUALONE
     Indication: Intervertebral disc disorder
     Dosage: 1 DOSAGE FORM, BID
     Dates: start: 20231027, end: 20231106

REACTIONS (2)
  - Drug eruption [Recovering/Resolving]
  - Off label use [Unknown]

NARRATIVE: CASE EVENT DATE: 20231027
